FAERS Safety Report 5836622-0 (Version None)
Quarter: 2008Q3

REPORT INFORMATION
  Report Type: 
  Country: None (occurrence: None)
  Receive Date: 20080807
  Receipt Date: 20080728
  Transmission Date: 20090109
  Serious: Yes (Life-Threatening, Hospitalization, Other)
  Sender: FDA-Public Use
  Company Number: JP-ELI_LILLY_AND_COMPANY-JP200805001064

PATIENT
  Sex: Male
  Weight: 47.35 kg

DRUGS (12)
  1. GEMCITABINE HCL [Suspect]
     Indication: PANCREATIC CARCINOMA NON-RESECTABLE
     Dosage: 600 MG, OTHER
     Route: 042
     Dates: start: 20071204, end: 20071225
  2. GEMCITABINE HCL [Suspect]
     Dosage: 500 MG, OTHER
     Route: 042
     Dates: start: 20080108, end: 20080326
  3. ITOROL [Concomitant]
     Dosage: 20 MG, 2/D
     Route: 048
  4. SEVELAMER HYDROCHLORIDE [Concomitant]
     Dosage: 1000 MG, 2/D
     Route: 048
  5. CYTOTEC [Concomitant]
     Dosage: 100 UG, 2/D
     Route: 048
  6. CELTECT [Concomitant]
     Dosage: 30 MG, 2/D
     Route: 048
  7. GASTER D [Concomitant]
     Dosage: 10 MG, DAILY (1/D)
     Route: 048
  8. ALOSENN                            /00476901/ [Concomitant]
     Dosage: 0.5 G, DAILY (1/D)
     Route: 048
  9. MYSLEE [Concomitant]
     Dosage: 10 MG, DAILY (1/D)
     Route: 048
  10. DOMPERIDONE [Concomitant]
  11. SEROTONE [Concomitant]
  12. OXYCONTIN [Concomitant]
     Dosage: 5 MG, 2/D
     Route: 048

REACTIONS (4)
  - HEPATIC ENCEPHALOPATHY [None]
  - HEPATIC FUNCTION ABNORMAL [None]
  - INTERSTITIAL LUNG DISEASE [None]
  - NEUTROPHIL COUNT DECREASED [None]
